FAERS Safety Report 9177123 (Version 1)
Quarter: 2013Q1

REPORT INFORMATION
  Report Type: Spontaneous
  Country: GB (occurrence: None)
  Receive Date: 20130319
  Receipt Date: 20130319
  Transmission Date: 20140127
  Serious: Yes (Other)
  Sender: FDA-Public Use
  Company Number: FK201300833

PATIENT
  Sex: Male

DRUGS (4)
  1. OXALIPLATIN (MANUFACTURER UNKNOWN)(OXALIPLATIN)(OXALIPLATIN) [Suspect]
     Indication: PRODUCT USED FOR UNKNOWN INDICATION
  2. AVASTIN(BEVACIZUMAB)(BEVACIZUMAB) [Suspect]
     Indication: PRODUCT USED FOR UNKNOWN INDICATION
  3. EMTRICITABINE (EMTRICITABINE ) [Concomitant]
  4. RALTEGRAVIR(RALTEGRAVIR) [Concomitant]

REACTIONS (2)
  - Gastrointestinal carcinoma [None]
  - Drug interaction [None]
